FAERS Safety Report 9295866 (Version 1)
Quarter: 2013Q1

REPORT INFORMATION
  Report Type: Spontaneous
  Country: US (occurrence: None)
  Receive Date: 20121231
  Receipt Date: 20121231
  Transmission Date: 20140127
  Serious: Yes (Hospitalization, Other)
  Sender: FDA-Public Use
  Company Number: RB-44795-2012

PATIENT
  Age: 63 Year
  Sex: Male

DRUGS (9)
  1. SUBOXONE [Suspect]
     Indication: DRUG DEPENDENCE
     Route: 060
     Dates: end: 2009
  2. SUBOXONE [Suspect]
     Indication: DRUG DEPENDENCE
     Route: 060
  3. BUPRENORPHINE [Suspect]
     Indication: DRUG DEPENDENCE
     Route: 060
     Dates: end: 201111
  4. SUBUTEX [Suspect]
  5. CYMBALTA [Concomitant]
  6. FOLIC ACID [Concomitant]
  7. FORMOTEROL [Concomitant]
  8. COZAAR [Concomitant]
  9. SPIRIVA [Concomitant]

REACTIONS (6)
  - Therapeutic response decreased [None]
  - Drug dependence [None]
  - Dyspnoea [None]
  - Hypertension [None]
  - Wheezing [None]
  - Abdominal pain [None]
